FAERS Safety Report 5427375-9 (Version None)
Quarter: 2007Q3

REPORT INFORMATION
  Report Type: 
  Country: None (occurrence: None)
  Receive Date: 20070828
  Receipt Date: 20070820
  Transmission Date: 20080115
  Serious: Yes (Hospitalization)
  Sender: FDA-Public Use
  Company Number: CA-JNJFOC-20070704485

PATIENT
  Sex: Male
  Weight: 84 kg

DRUGS (3)
  1. REMICADE [Suspect]
     Indication: CROHN'S DISEASE
     Route: 042
  2. ACCOLATE [Concomitant]
     Indication: PREMEDICATION
     Route: 048
  3. HYDROXYZINE [Concomitant]
     Indication: PREMEDICATION
     Route: 048

REACTIONS (2)
  - INTESTINAL RESECTION [None]
  - RENAL TRANSPLANT [None]
